FAERS Safety Report 13957193 (Version 2)
Quarter: 2018Q1

REPORT INFORMATION
  Report Type: Spontaneous
  Country: US (occurrence: US)
  Receive Date: 20170911
  Receipt Date: 20180125
  Transmission Date: 20180508
  Serious: Yes (Hospitalization)
  Sender: FDA-Public Use
  Company Number: US-JNJFOC-20170906400

PATIENT
  Age: 56 Year
  Sex: Female

DRUGS (7)
  1. INVOKANA [Suspect]
     Active Substance: CANAGLIFLOZIN
     Indication: TYPE 2 DIABETES MELLITUS
     Route: 048
     Dates: start: 20141006, end: 20151014
  2. METFORMIN [Suspect]
     Active Substance: METFORMIN HYDROCHLORIDE
     Indication: TYPE 2 DIABETES MELLITUS
     Route: 048
     Dates: start: 2012
  3. ACTOS [Suspect]
     Active Substance: PIOGLITAZONE HYDROCHLORIDE
     Indication: TYPE 2 DIABETES MELLITUS
     Route: 048
     Dates: start: 2012
  4. CYMBALTA [Concomitant]
     Active Substance: DULOXETINE HYDROCHLORIDE
     Indication: NERVOUS SYSTEM DISORDER
     Route: 065
     Dates: start: 2015
  5. LISINOPRIL. [Concomitant]
     Active Substance: LISINOPRIL
     Indication: ANXIETY
     Route: 065
     Dates: start: 2012
  6. GABAPENTIN. [Concomitant]
     Active Substance: GABAPENTIN
     Indication: NEUROPATHY PERIPHERAL
     Route: 065
     Dates: start: 2015
  7. CELEXA [Concomitant]
     Active Substance: CITALOPRAM HYDROBROMIDE
     Indication: NERVOUS SYSTEM DISORDER
     Route: 065
     Dates: start: 2012

REACTIONS (10)
  - Hydronephrosis [Recovering/Resolving]
  - Toe amputation [Unknown]
  - Euglycaemic diabetic ketoacidosis [Recovering/Resolving]
  - Osteomyelitis [Recovering/Resolving]
  - Urine ketone body present [Recovering/Resolving]
  - Urosepsis [Recovering/Resolving]
  - Cellulitis [Recovering/Resolving]
  - Diabetic foot [Recovering/Resolving]
  - Gangrene [Recovering/Resolving]
  - Toe amputation [Recovering/Resolving]

NARRATIVE: CASE EVENT DATE: 20150720
